FAERS Safety Report 5317618-4 (Version None)
Quarter: 2007Q2

REPORT INFORMATION
  Report Type: 
  Country: None (occurrence: None)
  Receive Date: 20070507
  Receipt Date: 20070424
  Transmission Date: 20071010
  Serious: Yes (Disabling)
  Sender: FDA-Public Use
  Company Number: PHHO2007GB07079

PATIENT
  Age: 66 Year
  Sex: Male
  Weight: 89 kg

DRUGS (6)
  1. ZOLEDRONATE [Suspect]
     Indication: METASTASES TO BONE
     Dosage: 4MG EVERY 3 WEEKS
     Route: 042
     Dates: start: 20060906
  2. DOCETAXEL [Concomitant]
     Dosage: 125MG Q3 W
     Route: 042
     Dates: start: 20060905
  3. PREDNISOLONE [Concomitant]
     Dosage: 10 MG, QD
     Route: 048
     Dates: start: 20060906
  4. STRONTIUM [Suspect]
     Dosage: 150MBQ QMO
     Dates: start: 20070119
  5. CALCIUM CHLORIDE [Concomitant]
  6. VITAMIN D [Concomitant]

REACTIONS (2)
  - BONE DISORDER [None]
  - OSTEONECROSIS [None]
